FAERS Safety Report 7883200-8 (Version None)
Quarter: 2011Q4

REPORT INFORMATION
  Report Type: 
  Country: None (occurrence: None)
  Receive Date: 20111031
  Receipt Date: 20110519
  Transmission Date: 20120403
  Serious: Yes (Hospitalization, Disabling)
  Sender: FDA-Public Use
  Company Number: 2010AL002643

PATIENT
  Age: 64 Year
  Sex: Female
  Weight: 78.4723 kg

DRUGS (20)
  1. TRAZODONE HYDROCHLORIDE [Concomitant]
  2. ISOSORBIDE MONONITRATE [Concomitant]
  3. LISINOPRIL [Concomitant]
  4. DARVOCET [Concomitant]
  5. STALEVO 100 [Concomitant]
  6. CADUET [Concomitant]
  7. ASPIRIN [Concomitant]
  8. TRAMADOL HCL [Concomitant]
  9. REQUIP [Concomitant]
  10. METOCLOPRAMIDE [Suspect]
     Dosage: 10 MG;
     Dates: start: 20040823, end: 20051201
  11. FUROSEMIDE [Concomitant]
  12. FOLTX [Concomitant]
  13. INDERAL [Concomitant]
  14. OMEPRAZOLE [Concomitant]
  15. PREDNISONE [Concomitant]
  16. ATENOLOL [Concomitant]
  17. PROVIGIL [Concomitant]
  18. XANAX [Concomitant]
  19. TAMIFLU [Concomitant]
  20. LIPITOR [Concomitant]

REACTIONS (48)
  - ESSENTIAL TREMOR [None]
  - VOMITING [None]
  - DEFORMITY [None]
  - ASTHENIA [None]
  - CHRONIC FATIGUE SYNDROME [None]
  - MASKED FACIES [None]
  - NAUSEA [None]
  - CYTOMEGALOVIRUS INFECTION [None]
  - MULTIPLE INJURIES [None]
  - ANHEDONIA [None]
  - FATIGUE [None]
  - VISION BLURRED [None]
  - HYPOAESTHESIA [None]
  - ARTHRALGIA [None]
  - ECONOMIC PROBLEM [None]
  - PARKINSON'S DISEASE [None]
  - NERVE COMPRESSION [None]
  - ACTIVITIES OF DAILY LIVING IMPAIRED [None]
  - PAIN [None]
  - EMOTIONAL DISTRESS [None]
  - ARTHROPATHY [None]
  - ANAEMIA [None]
  - ENDOCRINE DISORDER [None]
  - TRANSMISSION OF AN INFECTIOUS AGENT VIA A MEDICINAL PRODUCT [None]
  - COGWHEEL RIGIDITY [None]
  - NERVOUS SYSTEM DISORDER [None]
  - RESTLESS LEGS SYNDROME [None]
  - MENTAL DISORDER [None]
  - INCORRECT DOSE ADMINISTERED [None]
  - HYPOTHYROIDISM [None]
  - PANIC ATTACK [None]
  - MUSCLE TWITCHING [None]
  - NEUROPATHY PERIPHERAL [None]
  - BRADYKINESIA [None]
  - EXTRAPYRAMIDAL DISORDER [None]
  - DEPRESSION [None]
  - DYSARTHRIA [None]
  - INTENTION TREMOR [None]
  - VIRAL INFECTION [None]
  - BURNING SENSATION [None]
  - BACK DISORDER [None]
  - BALANCE DISORDER [None]
  - ANTINUCLEAR ANTIBODY POSITIVE [None]
  - DYSKINESIA [None]
  - SPEECH DISORDER [None]
  - GASTROINTESTINAL HAEMORRHAGE [None]
  - GAIT DISTURBANCE [None]
  - HIP FRACTURE [None]
